FAERS Safety Report 8008921-8 (Version None)
Quarter: 2011Q4

REPORT INFORMATION
  Report Type: 
  Country: None (occurrence: None)
  Receive Date: 20111227
  Receipt Date: 20111221
  Transmission Date: 20120403
  Serious: Yes (Life-Threatening, Hospitalization, Disabling)
  Sender: FDA-Public Use
  Company Number: FR-PFIZER INC-2011309558

PATIENT
  Age: 48 Year
  Sex: Male
  Weight: 102 kg

DRUGS (7)
  1. DOXORUBICIN HCL [Suspect]
     Indication: NON-HODGKIN'S LYMPHOMA
     Dosage: 100 MG, EVERY 3 WEEKS
     Route: 042
     Dates: start: 20060908, end: 20061218
  2. MABTHERA [Suspect]
     Indication: NON-HODGKIN'S LYMPHOMA
     Dosage: 800 MG, EVERY 3 WEEKS
     Route: 042
     Dates: start: 20060908, end: 20061218
  3. ONCOVIN [Suspect]
     Indication: NON-HODGKIN'S LYMPHOMA
     Dosage: 2 MG, EVERY 3 WEEKS
     Route: 042
     Dates: start: 20060908, end: 20061218
  4. KETEK [Concomitant]
     Indication: PURULENCE
     Dosage: UNK
     Route: 048
     Dates: start: 20060101
  5. PREDNISONE TAB [Suspect]
     Indication: NON-HODGKIN'S LYMPHOMA
     Dosage: 80 MG, EVERY 3 WEEKS
     Route: 048
     Dates: start: 20060909, end: 20061223
  6. CYCLOPHOSPHAMIDE [Suspect]
     Indication: NON-HODGKIN'S LYMPHOMA
     Dosage: 1500 MG, EVERY 3 WEEKS
     Route: 042
     Dates: start: 20060908, end: 20061218
  7. KETEK [Concomitant]
     Indication: INCREASED UPPER AIRWAY SECRETION

REACTIONS (3)
  - HEPATITIS B [None]
  - LIVER TRANSPLANT [None]
  - HEPATITIS FULMINANT [None]
